FAERS Safety Report 4965690-3 (Version None)
Quarter: 2006Q2

REPORT INFORMATION
  Report Type: 
  Country: None (occurrence: None)
  Receive Date: 20060407
  Receipt Date: 20060330
  Transmission Date: 20061013
  Serious: Yes (Other)
  Sender: FDA-Public Use
  Company Number: US-SANOFI-SYNTHELABO-A03200601914

PATIENT
  Sex: Male

DRUGS (13)
  1. AMBIEN [Suspect]
     Indication: DRUG USE FOR UNKNOWN INDICATION
     Route: 048
     Dates: start: 20060201
  2. COREG [Concomitant]
     Dosage: UNK
     Route: 048
  3. MICARDIS [Concomitant]
     Dosage: UNK
     Route: 048
  4. LANOXIN [Concomitant]
     Dosage: UNK
     Route: 048
  5. NORVASC [Concomitant]
     Dosage: UNK
     Route: 048
  6. ASPIRIN [Concomitant]
     Dosage: UNK
     Route: 048
  7. XOPENEX [Concomitant]
     Dosage: UNK
     Route: 055
  8. IPRATROPIUM BROMIDE [Concomitant]
     Dosage: UNK
     Route: 055
  9. FLONASE [Concomitant]
     Dosage: UNK
     Route: 045
  10. ATARAX [Concomitant]
     Dosage: UNK
     Route: 048
  11. IMODIUM [Concomitant]
     Route: 048
  12. ISOPHANE INSULIN [Concomitant]
     Dosage: UNK
     Route: 058
  13. REGULAR INSULIN [Concomitant]
     Dosage: UNK
     Route: 058

REACTIONS (2)
  - BLOOD PRESSURE DECREASED [None]
  - BRADYCARDIA [None]
